FAERS Safety Report 8259993-7 (Version None)
Quarter: 2012Q2

REPORT INFORMATION
  Report Type: 
  Country: None (occurrence: None)
  Receive Date: 20120404
  Receipt Date: 20120322
  Transmission Date: 20120825
  Serious: Yes (Death)
  Sender: FDA-Public Use
  Company Number: PL-CELGENEUS-129-20785-12032685

PATIENT
  Age: 50 Year
  Sex: Male

DRUGS (1)
  1. THALIDOMIDE [Suspect]
     Indication: MULTIPLE MYELOMA
     Dosage: 200-400 MG
     Route: 048
     Dates: start: 20060501, end: 20061101

REACTIONS (1)
  - LEUKAEMIA PLASMACYTIC [None]
